FAERS Safety Report 5914077-5 (Version None)
Quarter: 2008Q4

REPORT INFORMATION
  Report Type: 
  Country: None (occurrence: None)
  Receive Date: 20081007
  Receipt Date: 20080928
  Transmission Date: 20090506
  Serious: No
  Sender: FDA-Public Use
  Company Number: TPA2008A01526

PATIENT
  Sex: Female

DRUGS (3)
  1. ACTOS [Suspect]
     Dosage: 30 MG, QAM, PER ORAL; 30 MG, QPM, PER ORAL
     Route: 048
     Dates: start: 20080926, end: 20080927
  2. ACTOS [Suspect]
     Dosage: 30 MG, QAM, PER ORAL; 30 MG, QPM, PER ORAL
     Route: 048
     Dates: start: 20080927
  3. METFORMIN HCL [Concomitant]

REACTIONS (2)
  - FATIGUE [None]
  - SOMNOLENCE [None]
